FAERS Safety Report 8755826 (Version 2)
Quarter: 2012Q4

REPORT INFORMATION
  Report Type: 
  Country: US (occurrence: US)
  Receive Date: 20120827
  Receipt Date: 20120911
  Transmission Date: 20130627
  Serious: No
  Sender: FDA-Public Use
  Company Number: US-PFIZER INC-2012206851

PATIENT
  Age: 59 Year
  Sex: Male
  Weight: 86.17 kg

DRUGS (6)
  1. LYRICA [Suspect]
     Indication: SCIATICA
     Dosage: 150 mg, daily
     Route: 048
  2. LYRICA [Suspect]
     Dosage: 75 mg, UNK
     Route: 048
  3. LYRICA [Suspect]
     Dosage: 150 mg, 3x/day
     Route: 048
     Dates: end: 20120818
  4. FENTANYL [Concomitant]
     Indication: PAIN
     Dosage: UNK, every 48 hours
  5. HYDROCODONE [Concomitant]
     Indication: PAIN
     Dosage: 150 mg, 2x/day
  6. PAXIL [Concomitant]
     Indication: PAIN
     Dosage: 40 mg, daily

REACTIONS (6)
  - Paraesthesia [Unknown]
  - Burning sensation [Unknown]
  - Insomnia [Unknown]
  - Pyrexia [Unknown]
  - Neuralgia [Unknown]
  - Hypertension [Unknown]
